FAERS Safety Report 5692739-5 (Version None)
Quarter: 2008Q2

REPORT INFORMATION
  Report Type: 
  Country: None (occurrence: None)
  Receive Date: 20080401
  Receipt Date: 20080326
  Transmission Date: 20081010
  Serious: Yes (Death)
  Sender: FDA-Public Use
  Company Number: 163-21880-08010249 (2)

PATIENT
  Age: 67 Year
  Sex: Female
  Weight: 62.2 kg

DRUGS (9)
  1. REVLIMID [Suspect]
     Indication: AMYLOIDOSIS
     Dosage: 15 MG, DAILY DAYS 1-21, ORAL
     Route: 048
     Dates: start: 20071213, end: 20071201
  2. DEXAMETHASONE TAB [Suspect]
     Indication: AMYLOIDOSIS
     Dosage: 40 MG,  WEEKLY
  3. KLOR-CON [Concomitant]
  4. FLORINEF [Concomitant]
  5. REGLAN [Concomitant]
  6. EYEDROPS (TETRYZOLONE HYDROCHLORIDE) [Concomitant]
  7. BACTRIM DS [Concomitant]
  8. ASPIRIN [Concomitant]
  9. ACIPHEX [Concomitant]

REACTIONS (7)
  - AMYLOIDOSIS [None]
  - CONSTIPATION [None]
  - DISEASE PROGRESSION [None]
  - DRUG INTOLERANCE [None]
  - FOREIGN BODY TRAUMA [None]
  - RASH PAPULAR [None]
  - WEIGHT INCREASED [None]
